FAERS Safety Report 25684370 (Version 1)
Quarter: 2025Q3

REPORT INFORMATION
  Report Type: Report from Study
  Country: EU (occurrence: EU)
  Receive Date: 20250815
  Receipt Date: 20250815
  Transmission Date: 20251021
  Serious: Yes (Death, Other)
  Sender: ABBVIE
  Company Number: EU-ABBVIE-6416950

PATIENT
  Age: 82 Year
  Sex: Male

DRUGS (2)
  1. CARBIDOPA\LEVODOPA [Suspect]
     Active Substance: CARBIDOPA\LEVODOPA
     Indication: Parkinson^s disease
     Route: 050
     Dates: start: 20230912
  2. CARBIDOPA\LEVODOPA [Suspect]
     Active Substance: CARBIDOPA\LEVODOPA

REACTIONS (3)
  - Cardiac arrest [Fatal]
  - Asthenia [Unknown]
  - Dizziness [Unknown]

NARRATIVE: CASE EVENT DATE: 20250604
